FAERS Safety Report 9701500 (Version 1)
Quarter: 2013Q4

REPORT INFORMATION
  Report Type: Spontaneous
  Country: US (occurrence: None)
  Receive Date: 20131120
  Receipt Date: 20131120
  Transmission Date: 20140711
  Serious: No
  Sender: FDA-Public Use
  Company Number: None

PATIENT
  Age: 26 Year
  Sex: Male
  Weight: 99.79 kg

DRUGS (1)
  1. HYDROXYCHLOROQUINE [Suspect]
     Indication: ARTHRALGIA
     Dosage: 1 PILL TWICE DAILY TAKEN BY MOUTH
     Route: 048
     Dates: start: 20130423, end: 20130912

REACTIONS (2)
  - Gingival discolouration [None]
  - Cyanosis [None]
